FAERS Safety Report 8298379-6 (Version None)
Quarter: 2012Q2

REPORT INFORMATION
  Report Type: 
  Country: None (occurrence: None)
  Receive Date: 20120419
  Receipt Date: 20120410
  Transmission Date: 20120825
  Serious: Yes (Other)
  Sender: FDA-Public Use
  Company Number: US-ROCHE-1058737

PATIENT
  Sex: Female

DRUGS (3)
  1. PEGINTERFERON ALFA-2A [Suspect]
     Indication: HEPATITIS C
     Dates: start: 20120214
  2. COPEGUS [Suspect]
     Indication: HEPATITIS C
     Dates: start: 20120214
  3. TELAPREVIR [Suspect]
     Indication: HEPATITIS C
     Dates: start: 20120214, end: 20120229

REACTIONS (6)
  - HAEMORRHAGE [None]
  - HAEMORRHOIDS [None]
  - BURNING SENSATION [None]
  - ABDOMINAL DISTENSION [None]
  - GASTROINTESTINAL MUCOSAL DISORDER [None]
  - LOSS OF CONSCIOUSNESS [None]
